FAERS Safety Report 12747818 (Version 1)
Quarter: 2016Q3

REPORT INFORMATION
  Report Type: Spontaneous
  Country: US (occurrence: US)
  Receive Date: 20160915
  Receipt Date: 20160915
  Transmission Date: 20161109
  Serious: No
  Sender: FDA-Public Use
  Company Number: US-JAZZ-2016-US-010008

PATIENT
  Sex: Female

DRUGS (17)
  1. XYREM [Suspect]
     Active Substance: SODIUM OXYBATE
     Indication: CATAPLEXY
     Dosage: DOSE ADJUSTMENTS
     Route: 048
     Dates: start: 201605, end: 201605
  2. IBUPROFEN. [Concomitant]
     Active Substance: IBUPROFEN
  3. XYREM [Suspect]
     Active Substance: SODIUM OXYBATE
     Dosage: 4.5 G, BID
     Route: 048
     Dates: start: 201605, end: 20160518
  4. CLINDAGEL [Concomitant]
     Active Substance: CLINDAMYCIN PHOSPHATE
  5. NORVASC [Concomitant]
     Active Substance: AMLODIPINE BESYLATE
  6. CYMBALTA [Concomitant]
     Active Substance: DULOXETINE HYDROCHLORIDE
  7. COZAAR [Concomitant]
     Active Substance: LOSARTAN POTASSIUM
  8. NUVIGIL [Concomitant]
     Active Substance: ARMODAFINIL
  9. DYMISTA [Concomitant]
     Active Substance: AZELASTINE HYDROCHLORIDE\FLUTICASONE PROPIONATE
  10. ATENOLOL. [Concomitant]
     Active Substance: ATENOLOL
  11. RESTASIS [Concomitant]
     Active Substance: CYCLOSPORINE
  12. XYREM [Suspect]
     Active Substance: SODIUM OXYBATE
     Indication: NARCOLEPSY
     Dosage: 2.25 G, BID
     Route: 048
     Dates: start: 201604, end: 201605
  13. CELEBREX [Concomitant]
     Active Substance: CELECOXIB
  14. DIFLUCAN [Concomitant]
     Active Substance: FLUCONAZOLE
  15. NEXIUM [Concomitant]
     Active Substance: ESOMEPRAZOLE MAGNESIUM
  16. TYLENOL ARTHRITIS ER [Concomitant]
  17. VITAMIN D [Concomitant]
     Active Substance: CHOLECALCIFEROL

REACTIONS (3)
  - Chest pain [Unknown]
  - Increased upper airway secretion [Unknown]
  - Oropharyngeal pain [Unknown]

NARRATIVE: CASE EVENT DATE: 2016
